FAERS Safety Report 17226898 (Version 1)
Quarter: 2020Q1

REPORT INFORMATION
  Report Type: Spontaneous
  Country: US (occurrence: US)
  Receive Date: 20200102
  Receipt Date: 20200102
  Transmission Date: 20200409
  Serious: Yes (Other)
  Sender: FDA-Public Use
  Company Number: US-VISTAPHARM, INC.-VER201912-001521

PATIENT
  Age: 16 Year
  Sex: Male

DRUGS (2)
  1. GENESIS - ENERGY DRINK [Suspect]
     Active Substance: DIETARY SUPPLEMENT
     Indication: FATIGUE
     Dosage: ADDED TO 8 TO 12 OUNCE OF WATER
     Dates: start: 201311
  2. VALPROIC ACID. [Suspect]
     Active Substance: VALPROIC ACID
     Indication: EPILEPSY
     Dosage: EXTENDED-RELEASE 1000 MG AT BEDTIME
     Route: 048

REACTIONS (3)
  - Herbal interaction [Recovered/Resolved]
  - Drug level decreased [Recovered/Resolved]
  - Seizure [Recovered/Resolved]
